FAERS Safety Report 6436719-0 (Version None)
Quarter: 2009Q4

REPORT INFORMATION
  Report Type: 
  Country: None (occurrence: None)
  Receive Date: 20091110
  Receipt Date: 20080414
  Transmission Date: 20100525
  Serious: No
  Sender: FDA-Public Use
  Company Number: AEUSA200800093

PATIENT
  Age: 39 Year
  Sex: Female
  Weight: 63.9572 kg

DRUGS (19)
  1. GAMUNEX [Suspect]
     Indication: RELAPSING-REMITTING MULTIPLE SCLEROSIS
     Dosage: 70 GM;TOTAL;IV
     Route: 042
     Dates: start: 20080205, end: 20080206
  2. GAMUNEX [Suspect]
  3. GAMUNEX [Suspect]
  4. COPAXONE /01410902/ (CON.) [Concomitant]
  5. NOVANTRONE (CON.) [Concomitant]
  6. REBIF (CON.) [Concomitant]
  7. TYSABRI (CON.) [Concomitant]
  8. KLONOPIN (CON.) [Concomitant]
  9. FENTANYL /00174602/ (CON.) [Concomitant]
  10. DILAUDID /00080902/ (CON.) [Concomitant]
  11. EFFEXOR /01233801/ (CON.) [Concomitant]
  12. XANAX (CON.) [Concomitant]
  13. ZANAFLEX (CON.) [Concomitant]
  14. NEXIUM /01479302/ (CON.) [Concomitant]
  15. PHENERGAN /00033001/ (CON.) [Concomitant]
  16. AMBIEN (CON.) [Concomitant]
  17. TEMAZEPAM (CON.) [Concomitant]
  18. LIDODERM (CON.) [Concomitant]
  19. SOLUMEDROL (CON.) [Concomitant]

REACTIONS (4)
  - BLISTER [None]
  - HEADACHE [None]
  - RASH PRURITIC [None]
  - SKIN EXFOLIATION [None]
